FAERS Safety Report 8611376-3 (Version None)
Quarter: 2012Q3

REPORT INFORMATION
  Report Type: 
  Country: None (occurrence: None)
  Receive Date: 20120822
  Receipt Date: 20120814
  Transmission Date: 20120928
  Serious: Yes (Other)
  Sender: FDA-Public Use
  Company Number: US-PFIZER INC-2012187212

PATIENT
  Age: 34 Year
  Sex: Male
  Weight: 113.38 kg

DRUGS (4)
  1. EFFEXOR XR [Suspect]
     Dosage: UNK
     Dates: start: 20120401
  2. LITHIUM [Concomitant]
     Indication: AFFECTIVE DISORDER
     Dosage: UNK
  3. VENLAFAXINE HCL [Suspect]
     Indication: DEPRESSION
     Dosage: 75 MG, 1X/DAY
     Route: 048
     Dates: start: 20110101, end: 20110601
  4. STRATTERA [Concomitant]
     Indication: ATTENTION DEFICIT/HYPERACTIVITY DISORDER
     Dosage: UNK

REACTIONS (4)
  - MANIA [None]
  - FEELING ABNORMAL [None]
  - PAIN [None]
  - DEPRESSION [None]
